FAERS Safety Report 26012799 (Version 1)
Quarter: 2025Q4

REPORT INFORMATION
  Report Type: Report from Study
  Country: US (occurrence: US)
  Receive Date: 20251107
  Receipt Date: 20251107
  Transmission Date: 20260118
  Serious: No
  Sender: MALLINCKRODT
  Company Number: US-MALLINCKRODT-MNK202506747

PATIENT
  Sex: Female

DRUGS (2)
  1. CORTICOTROPIN [Suspect]
     Active Substance: CORTICOTROPIN
     Indication: Punctate keratitis
     Dosage: 80 UNITS
  2. CORTICOTROPIN [Suspect]
     Active Substance: CORTICOTROPIN
     Dosage: 40 UNITS

REACTIONS (5)
  - Weight fluctuation [Unknown]
  - Dyspnoea exertional [Unknown]
  - Chest discomfort [Unknown]
  - Blood pressure increased [Not Recovered/Not Resolved]
  - Rash erythematous [Unknown]
